FAERS Safety Report 25904652 (Version 1)
Quarter: 2025Q4

REPORT INFORMATION
  Report Type: Spontaneous
  Country: EU (occurrence: EU)
  Receive Date: 20251010
  Receipt Date: 20251010
  Transmission Date: 20260118
  Serious: Yes (Disabling)
  Sender: TAKEDA
  Company Number: None

PATIENT
  Age: 55 Year
  Sex: Female
  Weight: 66 kg

DRUGS (1)
  1. LISDEXAMFETAMINE DIMESYLATE [Suspect]
     Active Substance: LISDEXAMFETAMINE DIMESYLATE
     Indication: Attention deficit hyperactivity disorder
     Dosage: 50 MILLIGRAM, QD
     Dates: start: 20211006

REACTIONS (3)
  - Tooth disorder [Not Recovered/Not Resolved]
  - Dry mouth [Not Recovered/Not Resolved]
  - Gingival disorder [Not Recovered/Not Resolved]

NARRATIVE: CASE EVENT DATE: 20220101
